FAERS Safety Report 5091999-1 (Version None)
Quarter: 2006Q3

REPORT INFORMATION
  Report Type: 
  Country: None (occurrence: None)
  Receive Date: 20060825
  Receipt Date: 20060808
  Transmission Date: 20061208
  Serious: Yes (Other)
  Sender: FDA-Public Use
  Company Number: DE200608000383

PATIENT
  Age: 47 Year
  Sex: Female
  Weight: 65 kg

DRUGS (1)
  1. YENTREVE(DULOXETINE HYDROCHLORIDE) CAPSULE [Suspect]
     Dosage: 20 MG, 2/D, ORAL
     Route: 048

REACTIONS (4)
  - DRUG INEFFECTIVE [None]
  - ENURESIS [None]
  - HYPERTENSION [None]
  - PALPITATIONS [None]
